FAERS Safety Report 19415837 (Version 1)
Quarter: 2021Q2

REPORT INFORMATION
  Report Type: Report from Study
  Country: US (occurrence: US)
  Receive Date: 20210615
  Receipt Date: 20210615
  Transmission Date: 20210717
  Serious: Yes (Hospitalization)
  Sender: FDA-Public Use
  Company Number: NVSC2021US125772

PATIENT
  Sex: Female

DRUGS (1)
  1. ENTRESTO [Suspect]
     Active Substance: SACUBITRIL\VALSARTAN
     Indication: PRODUCT USED FOR UNKNOWN INDICATION
     Dosage: 50 MG, BID (APPROX APR 2021)
     Route: 048
     Dates: start: 202104

REACTIONS (4)
  - Fall [Unknown]
  - Tinnitus [Unknown]
  - Product dose omission issue [Unknown]
  - Headache [Unknown]
